FAERS Safety Report 10607631 (Version 1)
Quarter: 2014Q4

REPORT INFORMATION
  Report Type: Spontaneous
  Country: US (occurrence: None)
  Receive Date: 20141124
  Receipt Date: 20141124
  Transmission Date: 20150529
  Serious: No
  Sender: FDA-Public Use
  Company Number: None

PATIENT
  Age: 3 Year
  Sex: Male
  Weight: 14 kg

DRUGS (3)
  1. FLUTICASONE [Suspect]
     Active Substance: FLUTICASONE\FLUTICASONE PROPIONATE
     Indication: ADENOIDITIS
     Dosage: 1 SPRAY, INFRA NASAL
     Dates: start: 20141101, end: 20141118
  2. FLUTICASONE PROPIONATE (FLONASE) [Concomitant]
  3. FLUTICASONE [Suspect]
     Active Substance: FLUTICASONE\FLUTICASONE PROPIONATE
     Indication: TONSILLAR HYPERTROPHY
     Dosage: 1 SPRAY, INFRA NASAL
     Dates: start: 20141101, end: 20141118

REACTIONS (3)
  - Movement disorder [None]
  - Excessive eye blinking [None]
  - Tic [None]

NARRATIVE: CASE EVENT DATE: 20141120
